FAERS Safety Report 6279328-9 (Version None)
Quarter: 2009Q3

REPORT INFORMATION
  Report Type: 
  Country: None (occurrence: None)
  Receive Date: 20090723
  Receipt Date: 20081003
  Transmission Date: 20100115
  Serious: Yes (Other)
  Sender: FDA-Public Use
  Company Number: US-AMGEN-KDL311584

PATIENT
  Sex: Female

DRUGS (2)
  1. PROCRIT [Suspect]
     Indication: ANAEMIA
     Dates: start: 20080901
  2. ANTIHYPERTENSIVE MEDICATION NOS [Concomitant]

REACTIONS (3)
  - ASTHENIA [None]
  - CONVULSION [None]
  - PERIORBITAL HAEMATOMA [None]
